FAERS Safety Report 5496735-2 (Version None)
Quarter: 2007Q4

REPORT INFORMATION
  Report Type: 
  Country: None (occurrence: None)
  Receive Date: 20071025
  Receipt Date: 20071017
  Transmission Date: 20080405
  Serious: Yes (Hospitalization)
  Sender: FDA-Public Use
  Company Number: US-AMGEN-US225531

PATIENT
  Sex: Female

DRUGS (11)
  1. AMG 531 - BLINDED [Suspect]
     Indication: MYELODYSPLASTIC SYNDROME
     Route: 058
     Dates: start: 20070517
  2. AMG 531 - BLINDED [Suspect]
     Route: 058
     Dates: start: 20070614
  3. PROCRIT [Suspect]
     Indication: ANAEMIA
     Route: 058
     Dates: start: 20070517
  4. REVLIMID [Concomitant]
     Route: 048
     Dates: start: 20070514
  5. FUROSEMIDE [Concomitant]
     Route: 065
  6. ENALAPRIL MALEATE [Concomitant]
     Route: 065
  7. OXYCODONE HCL [Concomitant]
     Route: 065
  8. PROTONIX [Concomitant]
     Route: 065
  9. MAGNESIUM OXIDE [Concomitant]
     Route: 065
  10. POTASSIUM CHLORIDE [Concomitant]
     Route: 065
  11. LEVOTHYROXINE SODIUM [Concomitant]
     Route: 065

REACTIONS (2)
  - BACK PAIN [None]
  - MUSCLE SPASMS [None]
